FAERS Safety Report 4319406-4 (Version None)
Quarter: 2004Q1

REPORT INFORMATION
  Report Type: 
  Country: None (occurrence: None)
  Receive Date: 20040318
  Receipt Date: 20040318
  Transmission Date: 20041129
  Serious: Yes (Other)
  Sender: FDA-Public Use
  Company Number: None

PATIENT
  Sex: Male
  Weight: 72.5755 kg

DRUGS (4)
  1. AMNESTEEM [Suspect]
     Indication: ACNE CYSTIC
     Dosage: 20 MG ONCE A DAY ORAL
     Route: 048
     Dates: start: 20021231, end: 20030501
  2. AMNESTEEM [Suspect]
     Indication: ACNE CYSTIC
     Dosage: 40 MG ONCE A DAY ORAL
     Route: 048
  3. AMNESTEEM [Concomitant]
  4. ACCUTANE [Concomitant]

REACTIONS (7)
  - CONDITION AGGRAVATED [None]
  - DEPRESSION [None]
  - EPISTAXIS [None]
  - NODULE [None]
  - PAIN [None]
  - PHARMACEUTICAL PRODUCT COMPLAINT [None]
  - SCAR [None]
